FAERS Safety Report 12293312 (Version 1)
Quarter: 2016Q2

REPORT INFORMATION
  Report Type: Spontaneous
  Country: IT (occurrence: IT)
  Receive Date: 20160421
  Receipt Date: 20160421
  Transmission Date: 20160815
  Serious: Yes (Death)
  Sender: FDA-Public Use
  Company Number: IT-ROXANE LABORATORIES, INC.-2016-RO-00702RO

PATIENT
  Age: 2 Year
  Sex: Female

DRUGS (1)
  1. METHADONE HCL ORAL SOLUTION USP, 5 MG/5 ML [Suspect]
     Active Substance: METHADONE HYDROCHLORIDE
     Indication: ACCIDENTAL EXPOSURE TO PRODUCT
     Route: 048

REACTIONS (1)
  - Accidental exposure to product by child [Fatal]
